FAERS Safety Report 12008075 (Version 1)
Quarter: 2016Q1

REPORT INFORMATION
  Report Type: Spontaneous
  Country: US (occurrence: US)
  Receive Date: 20160205
  Receipt Date: 20160205
  Transmission Date: 20160526
  Serious: No
  Sender: FDA-Public Use
  Company Number: US-AUROBINDO-AUR-APU-2015-01539

PATIENT
  Age: 9 Year
  Sex: Male
  Weight: 34.14 kg

DRUGS (1)
  1. CEFDINIR FOR ORAL SUSPENSION 250 MG/5 ML [Suspect]
     Active Substance: CEFDINIR
     Indication: EAR INFECTION
     Dosage: 250 MG/5ML, ONCE A DAY
     Route: 048
     Dates: start: 20150217, end: 20150218

REACTIONS (3)
  - Urticaria [Recovered/Resolved]
  - Muscle spasms [Recovered/Resolved]
  - Muscular weakness [Recovered/Resolved]

NARRATIVE: CASE EVENT DATE: 20150218
